FAERS Safety Report 14009603 (Version 1)
Quarter: 2017Q3

REPORT INFORMATION
  Report Type: Not Available
  Country: None (occurrence: US)
  Receive Date: 20170925
  Receipt Date: 20170925
  Transmission Date: 20171128
  Serious: No
  Sender: FDA-Public Use
  Company Number: US-AKORN-48615

PATIENT
  Sex: Male

DRUGS (1)
  1. CICLOPIROX TOPICAL SOLUTION, 8% (NAIL LACQUER) [Suspect]
     Active Substance: CICLOPIROX

REACTIONS (2)
  - Drug ineffective [Unknown]
  - Nail discolouration [Unknown]
